FAERS Safety Report 5922217-7 (Version None)
Quarter: 2008Q4

REPORT INFORMATION
  Report Type: 
  Country: None (occurrence: None)
  Receive Date: 20081015
  Receipt Date: 20081008
  Transmission Date: 20090506
  Serious: Yes (Life-Threatening, Hospitalization)
  Sender: FDA-Public Use
  Company Number: TPA2008A01396

PATIENT
  Age: 51 Year
  Sex: Female
  Weight: 57.1532 kg

DRUGS (5)
  1. ACTOS [Suspect]
     Indication: TYPE 2 DIABETES MELLITUS
     Dosage: 30 MG, 1 IN 1 D, PER ORAL
     Route: 048
     Dates: start: 20080721, end: 20080815
  2. METAGLIP (METFORMIN HYDROCHLORIDE, GLIPIZIDE) [Concomitant]
  3. ADALACT CC (NIFEDIPINE) [Concomitant]
  4. CLONIDINE [Concomitant]
  5. DIOVAN [Concomitant]

REACTIONS (2)
  - CORONARY ARTERY OCCLUSION [None]
  - MYOCARDIAL INFARCTION [None]
